FAERS Safety Report 7564673-7 (Version None)
Quarter: 2011Q2

REPORT INFORMATION
  Report Type: 
  Country: None (occurrence: None)
  Receive Date: 20110622
  Receipt Date: 20100816
  Transmission Date: 20111010
  Serious: Yes (Other)
  Sender: FDA-Public Use
  Company Number: US-MYLANLABS-2010S1015053

PATIENT
  Age: 30 Year
  Sex: Male

DRUGS (6)
  1. PRILOSEC [Concomitant]
  2. REMERON [Concomitant]
  3. LASIX [Concomitant]
  4. CLOZAPINE [Suspect]
     Route: 048
     Dates: end: 20100810
  5. ARTANE [Concomitant]
  6. LOPRESSOR [Concomitant]

REACTIONS (1)
  - GRANULOCYTOPENIA [None]
